FAERS Safety Report 10082267 (Version 1)
Quarter: 2014Q2

REPORT INFORMATION
  Report Type: Report from Study
  Country: BR (occurrence: BR)
  Receive Date: 20140416
  Receipt Date: 20140416
  Transmission Date: 20141212
  Serious: Yes (Other)
  Sender: FDA-Public Use
  Company Number: PHHY2014BR045778

PATIENT
  Sex: Female
  Weight: 80 kg

DRUGS (5)
  1. EXFORGE HCT [Suspect]
     Indication: HYPERTENSION
     Dosage: 1 DF, DAILY
     Route: 048
     Dates: start: 201310
  2. DIOVAN [Suspect]
     Dosage: UNK UKN, UNK
  3. AZORGA [Suspect]
     Dosage: UNK UKN, UNK
  4. GLIFAGE [Concomitant]
     Indication: DIABETES MELLITUS
     Dosage: UNK UKN, UNK
     Dates: start: 201310
  5. SIMVASTATIN [Concomitant]
     Indication: BLOOD CHOLESTEROL ABNORMAL
     Dosage: UNK UKN, UNK
     Dates: start: 201310

REACTIONS (1)
  - Osteoarthritis [Recovering/Resolving]
